FAERS Safety Report 7355075-7 (Version None)
Quarter: 2011Q1

REPORT INFORMATION
  Report Type: 
  Country: None (occurrence: None)
  Receive Date: 20110316
  Receipt Date: 20110314
  Transmission Date: 20110831
  Serious: No
  Sender: FDA-Public Use
  Company Number: US-PFIZER INC-2010173168

PATIENT
  Sex: Male
  Weight: 99.8 kg

DRUGS (6)
  1. HYOSCYAMINE [Concomitant]
     Indication: ABDOMINAL PAIN
     Dosage: 0.125 MG, UNK
  2. NEXIUM [Concomitant]
     Indication: ABDOMINAL PAIN
     Dosage: UNK
  3. CELEBREX [Suspect]
     Indication: PAIN
     Dosage: 100 MG, 1X/DAY
     Route: 048
     Dates: start: 20101001, end: 20101201
  4. CELEBREX [Suspect]
     Indication: MYALGIA
  5. CELEBREX [Suspect]
     Indication: MUSCULOSKELETAL PAIN
  6. CELEBREX [Suspect]
     Indication: MUSCLE STRAIN

REACTIONS (6)
  - NASOPHARYNGITIS [None]
  - DIZZINESS [None]
  - PARAESTHESIA [None]
  - FEELING ABNORMAL [None]
  - CHILLS [None]
  - HYPOAESTHESIA [None]
